FAERS Safety Report 16333382 (Version 1)
Quarter: 2019Q2

REPORT INFORMATION
  Report Type: Spontaneous
  Country: US (occurrence: US)
  Receive Date: 20190520
  Receipt Date: 20190520
  Transmission Date: 20190711
  Serious: No
  Sender: FDA-Public Use
  Company Number: US-VANDA PHARMACEUTICALS, INC-2018ILOUS001720

PATIENT
  Sex: Female

DRUGS (5)
  1. FANAPT [Suspect]
     Active Substance: ILOPERIDONE
     Indication: PSYCHOTIC DISORDER
     Dosage: UNK
  2. ZYPREXA [Concomitant]
     Active Substance: OLANZAPINE
     Dosage: 10 MG, QD
  3. LEXAPRO [Concomitant]
     Active Substance: ESCITALOPRAM OXALATE
     Indication: PRODUCT USED FOR UNKNOWN INDICATION
     Dosage: UNK
     Route: 048
  4. LATUDA [Concomitant]
     Active Substance: LURASIDONE HYDROCHLORIDE
     Indication: PSYCHOTIC DISORDER
     Dosage: 120 MG, UNK
     Route: 048
  5. ZYPREXA [Concomitant]
     Active Substance: OLANZAPINE
     Indication: PSYCHOTIC DISORDER
     Dosage: 30 MG, QHS
     Route: 048

REACTIONS (1)
  - Psychotic disorder [Not Recovered/Not Resolved]
